FAERS Safety Report 9689993 (Version 2)
Quarter: 2013Q4

REPORT INFORMATION
  Report Type: Spontaneous
  Country: US (occurrence: US)
  Receive Date: 20131115
  Receipt Date: 20131115
  Transmission Date: 20140711
  Serious: No
  Sender: FDA-Public Use
  Company Number: US-ASTRAZENECA-2013SE04117

PATIENT
  Age: 66 Year
  Sex: Female

DRUGS (4)
  1. SYMBICORT PMDI [Suspect]
     Dosage: FOUR TIMES A DAY
     Route: 055
  2. SYMBICORT PMDI [Suspect]
     Dosage: TWO TIMES A DAY
     Route: 055
  3. SYMBICORT PMDI [Suspect]
     Dosage: 160/4.5 MCG, UNKNOWN
     Route: 055
  4. SYMBICORT PMDI [Suspect]
     Route: 055
     Dates: start: 2011

REACTIONS (3)
  - Dyspnoea [Unknown]
  - Intentional drug misuse [Unknown]
  - Drug dose omission [Unknown]
